FAERS Safety Report 9771096 (Version 1)
Quarter: 2013Q4

REPORT INFORMATION
  Report Type: Spontaneous
  Country: ES (occurrence: ES)
  Receive Date: 20131218
  Receipt Date: 20131218
  Transmission Date: 20140711
  Serious: Yes (Other)
  Sender: FDA-Public Use
  Company Number: ES-PFIZER INC-2013363082

PATIENT
  Age: 44 Year
  Sex: Male

DRUGS (1)
  1. LYRICA [Suspect]
     Indication: SCIATICA
     Dosage: 25 MG, 3X/DAY
     Route: 048
     Dates: start: 20131115, end: 20131121

REACTIONS (4)
  - Pruritus [Recovering/Resolving]
  - Inflammation [Recovering/Resolving]
  - Rash [Recovering/Resolving]
  - Skin reaction [Unknown]
